FAERS Safety Report 16960170 (Version 1)
Quarter: 2019Q4

REPORT INFORMATION
  Report Type: Spontaneous
  Country: US (occurrence: US)
  Receive Date: 20191025
  Receipt Date: 20191025
  Transmission Date: 20200122
  Serious: No
  Sender: FDA-Public Use
  Company Number: US-CIPLA LTD.-2019US01901

PATIENT

DRUGS (4)
  1. BACLOFEN. [Concomitant]
     Active Substance: BACLOFEN
     Indication: MUSCULOSKELETAL PAIN
  2. BACLOFEN. [Concomitant]
     Active Substance: BACLOFEN
     Indication: NECK PAIN
     Dosage: 10 MILLIGRAM, QD (2 TABLETS AT NIGHT)
     Route: 065
  3. GABAPENTIN. [Suspect]
     Active Substance: GABAPENTIN
     Indication: MUSCULOSKELETAL PAIN
     Dosage: 300 MILLIGRAM, BID (TWICE A DAY, 600 MG A DAY)
     Route: 048
  4. GABAPENTIN. [Suspect]
     Active Substance: GABAPENTIN
     Indication: NECK PAIN

REACTIONS (12)
  - Joint swelling [Unknown]
  - Hyperphagia [Unknown]
  - Peripheral swelling [Unknown]
  - Somnolence [Unknown]
  - Nausea [Unknown]
  - Weight increased [Unknown]
  - Sensory disturbance [Unknown]
  - Fatigue [Unknown]
  - Eyelid disorder [Unknown]
  - Speech disorder [Unknown]
  - Apathy [Unknown]
  - Coordination abnormal [Unknown]
